FAERS Safety Report 9909082 (Version 2)
Quarter: 2014Q1

REPORT INFORMATION
  Report Type: Report from Study
  Country: US (occurrence: US)
  Receive Date: 20140219
  Receipt Date: 20140310
  Transmission Date: 20141002
  Serious: Yes (Hospitalization)
  Sender: FDA-Public Use
  Company Number: US-PFIZER INC-2014041741

PATIENT
  Age: 62 Year
  Sex: Female
  Weight: 85 kg

DRUGS (11)
  1. TOFACITINIB CITRATE [Suspect]
     Indication: RHEUMATOID ARTHRITIS
     Dosage: 10 MG, 2X/DAY
     Route: 048
     Dates: start: 20100914, end: 20140207
  2. METHOTREXATE [Concomitant]
     Indication: RHEUMATOID ARTHRITIS
     Dosage: 10 MG, QWK
     Route: 048
     Dates: start: 20061010
  3. FOLIC ACID [Concomitant]
     Indication: RHEUMATOID ARTHRITIS
     Dosage: 1 MG, 1X/DAY
     Route: 048
     Dates: start: 20061010
  4. LIPITOR [Concomitant]
     Indication: HYPERCHOLESTEROLAEMIA
     Dosage: 10 MG, 1X/DAY
     Route: 048
     Dates: start: 2006
  5. ALLEGRA [Concomitant]
     Indication: SEASONAL ALLERGY
     Dosage: 180 MG, 1X/DAY
     Route: 048
     Dates: start: 2006
  6. FLONASE [Concomitant]
     Indication: SEASONAL ALLERGY
     Dosage: 1 DF (SPRAY), AS NEEDED; ROUTE - INH
     Route: 055
     Dates: start: 2006
  7. CALCIUM [Concomitant]
     Indication: NUTRITIONAL SUPPLEMENTATION
     Dosage: 1500 MG, 1X/DAY
     Route: 048
     Dates: start: 200807
  8. MOBIC [Concomitant]
     Indication: RHEUMATOID ARTHRITIS
     Dosage: 7.5 MG, 1X/DAY
     Route: 048
     Dates: start: 20090303
  9. ACIPHEX [Concomitant]
     Indication: GASTROOESOPHAGEAL REFLUX DISEASE
     Dosage: 20 MG, 1X/DAY
     Route: 048
     Dates: start: 20090910
  10. VITAMIN D [Concomitant]
     Indication: VITAMIN D DEFICIENCY
     Dosage: 1X/DAY; FORMULATION - PILL
     Route: 048
     Dates: start: 20120301
  11. NORVASC [Concomitant]
     Indication: HYPERTENSION
     Dosage: 5 MG, 1X/DAY; FORMULATION - PILL
     Route: 048
     Dates: start: 20110601

REACTIONS (1)
  - Diverticulitis [Recovered/Resolved]
